FAERS Safety Report 4872757-7 (Version None)
Quarter: 2005Q4

REPORT INFORMATION
  Report Type: 
  Country: None (occurrence: None)
  Receive Date: 20051223
  Receipt Date: 20050106
  Transmission Date: 20060501
  Serious: Yes (Hospitalization)
  Sender: FDA-Public Use
  Company Number: US014537

PATIENT
  Sex: Male

DRUGS (4)
  1. ACTIQ [Suspect]
     Dates: start: 20020618
  2. ACTIQ [Suspect]
     Dosage: 4 UNIT QD BUCCAL
     Route: 002
     Dates: end: 20030501
  3. ACTIQ [Suspect]
     Dosage: 8 UNIT QD BUCCAL
     Route: 002
     Dates: start: 20030501
  4. DURAGESIC-100 [Suspect]
     Dates: start: 20000425

REACTIONS (3)
  - DENTAL CARIES [None]
  - DRUG DEPENDENCE [None]
  - PAIN [None]
